FAERS Safety Report 20014294 (Version 1)
Quarter: 2021Q4

REPORT INFORMATION
  Report Type: Spontaneous
  Country: US (occurrence: US)
  Receive Date: 20211029
  Receipt Date: 20211029
  Transmission Date: 20220303
  Serious: No
  Sender: FDA-Public Use
  Company Number: US-PFIZER INC-202101197223

PATIENT

DRUGS (1)
  1. LORLATINIB [Suspect]
     Active Substance: LORLATINIB
     Indication: Anaplastic large cell lymphoma T- and null-cell types
     Dosage: UNK

REACTIONS (3)
  - Off label use [Unknown]
  - Hypertension [Unknown]
  - Hyperglycaemia [Unknown]
